FAERS Safety Report 15681454 (Version 1)
Quarter: 2018Q4

REPORT INFORMATION
  Report Type: Spontaneous
  Country: US (occurrence: US)
  Receive Date: 20181121
  Receipt Date: 20181121
  Transmission Date: 20190205
  Serious: Yes (Hospitalization)
  Sender: FDA-Public Use
  Company Number: None

PATIENT
  Age: 52 Year
  Sex: Female
  Weight: 101.6 kg

DRUGS (2)
  1. LETROZOLE. [Suspect]
     Active Substance: LETROZOLE
     Route: 048
  2. 125MG PALBOCICLIB [Suspect]
     Active Substance: PALBOCICLIB
     Route: 048

REACTIONS (7)
  - Vomiting [None]
  - Diarrhoea [None]
  - Hypophagia [None]
  - Renal failure [None]
  - Nausea [None]
  - Colitis [None]
  - Escherichia infection [None]

NARRATIVE: CASE EVENT DATE: 20181116
